FAERS Safety Report 4734593-1 (Version None)
Quarter: 2005Q3

REPORT INFORMATION
  Report Type: 
  Country: None (occurrence: None)
  Receive Date: 20050729
  Receipt Date: 20050720
  Transmission Date: 20060218
  Serious: Yes (Hospitalization)
  Sender: FDA-Public Use
  Company Number: 2005095843

PATIENT
  Age: 25 Year
  Sex: Female

DRUGS (2)
  1. ZOLOFT [Suspect]
     Indication: DEPRESSION
     Dosage: 50 MG (50 MG, 1 IN 1 D), ORAL
     Route: 048
     Dates: start: 20050404, end: 20050605
  2. ZOLOFT [Suspect]
     Indication: GENERALISED ANXIETY DISORDER
     Dosage: 50 MG (50 MG, 1 IN 1 D), ORAL
     Route: 048
     Dates: start: 20050404, end: 20050605

REACTIONS (6)
  - ASTHENIA [None]
  - BURNING SENSATION [None]
  - NAUSEA [None]
  - NECK PAIN [None]
  - PAIN [None]
  - RHABDOMYOLYSIS [None]
